FAERS Safety Report 6098323-6 (Version None)
Quarter: 2009Q1

REPORT INFORMATION
  Report Type: 
  Country: None (occurrence: None)
  Receive Date: 20090302
  Receipt Date: 20090218
  Transmission Date: 20090719
  Serious: Yes (Hospitalization)
  Sender: FDA-Public Use
  Company Number: FR-PFIZER INC-2009173682

PATIENT

DRUGS (15)
  1. TAHOR [Suspect]
     Route: 048
     Dates: end: 20081023
  2. DOXORUBICIN HCL [Suspect]
     Indication: OVARIAN CANCER
     Dosage: CYCLIC EVERY 4 WEEKS
     Route: 042
     Dates: start: 20080615, end: 20080915
  3. EVISTA [Suspect]
     Route: 048
     Dates: end: 20081013
  4. OROCAL VITAMIN D [Suspect]
     Route: 048
     Dates: end: 20081013
  5. LEVOTHYROX [Concomitant]
     Dosage: 150 UG, 1X/DAY
  6. STAGID [Concomitant]
     Dosage: 700 MG, 1X/DAY
  7. PYRIDOXINE [Concomitant]
  8. LANTUS [Concomitant]
  9. NOVORAPID [Concomitant]
  10. FORLAX [Concomitant]
  11. BETNEVAL [Concomitant]
  12. POLARAMINE [Concomitant]
     Route: 042
  13. GLUCOSE MONOHYDRATE [Concomitant]
  14. GENTAMICIN [Concomitant]
  15. VANCOMYCIN [Concomitant]

REACTIONS (5)
  - ERYTHEMA [None]
  - PALMAR-PLANTAR ERYTHRODYSAESTHESIA SYNDROME [None]
  - PIGMENTATION DISORDER [None]
  - PRURITUS GENITAL [None]
  - RASH PUSTULAR [None]
